FAERS Safety Report 7444724-0 (Version None)
Quarter: 2011Q2

REPORT INFORMATION
  Report Type: 
  Country: None (occurrence: None)
  Receive Date: 20110429
  Receipt Date: 20100802
  Transmission Date: 20111010
  Serious: No
  Sender: FDA-Public Use
  Company Number: US-PFIZER INC-US-WYE-H16741110

PATIENT
  Age: 47 Year
  Sex: Female
  Weight: 92.1 kg

DRUGS (2)
  1. ADVIL ALLERGY SINUS [Suspect]
     Indication: SINUS CONGESTION
     Dosage: 1.0 DF, 1X/DAY
     Route: 048
     Dates: start: 20100702, end: 20100702
  2. ADVIL ALLERGY SINUS [Suspect]
     Dosage: 1.0 DF, 1X/DAY
     Route: 048
     Dates: start: 20100730, end: 20100730

REACTIONS (5)
  - ABDOMINAL PAIN UPPER [None]
  - NAUSEA [None]
  - VOMITING [None]
  - SOMNOLENCE [None]
  - DIARRHOEA [None]
